FAERS Safety Report 13015190 (Version 15)
Quarter: 2017Q3

REPORT INFORMATION
  Report Type: Report from Study
  Country: DE (occurrence: DE)
  Receive Date: 20161211
  Receipt Date: 20170829
  Transmission Date: 20171127
  Serious: Yes (Hospitalization, Other)
  Sender: FDA-Public Use
  Company Number: DE-BRISTOL-MYERS SQUIBB COMPANY-BMS-2016-104410

PATIENT
  Age: 51 Year
  Sex: Male
  Weight: 57.8 kg

DRUGS (25)
  1. FOLIC ACID. [Concomitant]
     Active Substance: FOLIC ACID
     Indication: PROPHYLAXIS
     Dosage: 5 MG, Q2WK
     Route: 048
     Dates: start: 20161114
  2. ALLOPURINOL. [Concomitant]
     Active Substance: ALLOPURINOL
     Indication: PROPHYLAXIS
     Dosage: 100 MG, QD
     Route: 048
     Dates: start: 20161114
  3. DASATINIB [Suspect]
     Active Substance: DASATINIB
     Indication: PRODUCT USED FOR UNKNOWN INDICATION
     Dosage: 100 MG, QD
     Route: 065
     Dates: start: 20161121, end: 20161202
  4. CYTARABINE. [Suspect]
     Active Substance: CYTARABINE
     Indication: PRODUCT USED FOR UNKNOWN INDICATION
     Dosage: 29880 MG, UNK
     Route: 065
     Dates: start: 20170324, end: 20170327
  5. COTRIMAZOL [Concomitant]
     Indication: PROPHYLAXIS
     Dosage: 960 MG, Q2WK
     Route: 048
     Dates: start: 20161114
  6. CEFTAZIDIME. [Concomitant]
     Active Substance: CEFTAZIDIME
     Indication: C-REACTIVE PROTEIN INCREASED
     Dosage: 6 G, UNK
     Route: 042
     Dates: start: 20161126
  7. NOXAFIL [Concomitant]
     Active Substance: POSACONAZOLE
     Indication: PRODUCT USED FOR UNKNOWN INDICATION
     Dosage: UNK
     Route: 048
     Dates: start: 20161126
  8. TIGECYCLINE. [Concomitant]
     Active Substance: TIGECYCLINE
     Indication: PROPHYLAXIS
     Dosage: 100 MG, UNK
     Route: 048
     Dates: start: 201701
  9. SCOPOLAMINE                        /00008701/ [Concomitant]
     Active Substance: SCOPOLAMINE
     Indication: VOMITING
     Dosage: UNK
     Route: 062
     Dates: start: 20161102
  10. MACROGOL [Concomitant]
     Active Substance: POLYETHYLENE GLYCOLS
     Indication: PROPHYLAXIS
     Dosage: UNK, QD
     Route: 048
     Dates: start: 20170110
  11. DASATINIB [Suspect]
     Active Substance: DASATINIB
     Indication: PRODUCT USED FOR UNKNOWN INDICATION
     Dosage: 50 MG, BID
     Route: 065
     Dates: start: 20061121
  12. CYTARABINE. [Suspect]
     Active Substance: CYTARABINE
     Indication: PRODUCT USED FOR UNKNOWN INDICATION
     Dosage: 29880 MG, UNK
     Route: 065
     Dates: start: 20170208, end: 20170212
  13. CYTARABINE. [Suspect]
     Active Substance: CYTARABINE
     Indication: PRODUCT USED FOR UNKNOWN INDICATION
     Dosage: 29880 MG, UNK
     Route: 065
     Dates: start: 20170505, end: 20170508
  14. NOVAMINSULFON [Concomitant]
     Active Substance: METAMIZOLE
     Indication: PAIN
     Dosage: 500 MG, PRN
     Route: 048
     Dates: start: 20161114
  15. AMPICILLIN [Concomitant]
     Active Substance: AMPICILLIN
     Indication: PROPHYLAXIS
     Dosage: UNK
     Route: 042
     Dates: start: 20161120
  16. COTRIM FORTE [Concomitant]
     Active Substance: SULFAMETHOXAZOLE\TRIMETHOPRIM
     Indication: PROPHYLAXIS
     Dosage: UNK
     Route: 048
     Dates: start: 20161114
  17. ONDANSETRON [Concomitant]
     Active Substance: ONDANSETRON
     Indication: PRODUCT USED FOR UNKNOWN INDICATION
     Dosage: 8 MG, QD
     Route: 042
     Dates: start: 20161114
  18. COTRIM FORTE [Concomitant]
     Active Substance: SULFAMETHOXAZOLE\TRIMETHOPRIM
     Indication: PRODUCT USED FOR UNKNOWN INDICATION
     Dosage: UNK, BID
     Route: 048
     Dates: start: 20170110
  19. DASATINIB [Suspect]
     Active Substance: DASATINIB
     Indication: ACUTE MYELOID LEUKAEMIA
     Dosage: 100 MG, QD
     Route: 065
     Dates: start: 20161121, end: 20161130
  20. CYTARABINE. [Suspect]
     Active Substance: CYTARABINE
     Indication: PRODUCT USED FOR UNKNOWN INDICATION
     Dosage: 4980 MG, UNK
     Route: 065
     Dates: start: 20161229, end: 20161231
  21. PANTOPRAZOLE [Concomitant]
     Active Substance: PANTOPRAZOLE
     Indication: PROPHYLAXIS
     Dosage: 40 MG, QD
     Route: 048
     Dates: start: 20161114
  22. CYTARABINE. [Suspect]
     Active Substance: CYTARABINE
     Indication: ACUTE MYELOID LEUKAEMIA
     Dosage: 5250 MG, UNK
     Route: 065
     Dates: start: 20161114, end: 20161121
  23. DAUNORUBICIN [Suspect]
     Active Substance: DAUNORUBICIN
     Indication: ACUTE MYELOID LEUKAEMIA
     Dosage: 103.8 MG, UNK
     Route: 065
     Dates: start: 20161114, end: 20161121
  24. FILGRASTIM [Concomitant]
     Active Substance: FILGRASTIM
     Indication: PROPHYLAXIS
     Dosage: UNK
     Route: 058
     Dates: start: 20161113
  25. ONDANSETRON [Concomitant]
     Active Substance: ONDANSETRON
     Indication: NAUSEA
     Dosage: 8 MG, UNK
     Route: 048
     Dates: start: 20161114

REACTIONS (15)
  - Pericardial effusion [Recovered/Resolved]
  - Intestinal haemorrhage [Recovered/Resolved]
  - Pyrexia [Not Recovered/Not Resolved]
  - Rash [Recovered/Resolved]
  - Ileus [Recovered/Resolved]
  - Transaminases increased [Recovered/Resolved]
  - Stomatitis [Recovered/Resolved]
  - Dermatitis allergic [Recovered/Resolved]
  - Pneumonia fungal [Not Recovered/Not Resolved]
  - Pleural effusion [Recovered/Resolved]
  - Bacterial infection [Recovered/Resolved]
  - Pancreatitis [Recovered/Resolved]
  - Influenza [Recovered/Resolved]
  - Pruritus allergic [Recovered/Resolved]
  - Glossitis [Not Recovered/Not Resolved]

NARRATIVE: CASE EVENT DATE: 20161127
